FAERS Safety Report 16673170 (Version 1)
Quarter: 2019Q3

REPORT INFORMATION
  Report Type: Spontaneous
  Country: US (occurrence: US)
  Receive Date: 20190806
  Receipt Date: 20190806
  Transmission Date: 20191004
  Serious: No
  Sender: FDA-Public Use
  Company Number: US-PFIZER INC-2019331999

PATIENT
  Age: 72 Year
  Sex: Female

DRUGS (2)
  1. METHOTREXATE SODIUM. [Suspect]
     Active Substance: METHOTREXATE SODIUM
     Dosage: 25 MG, WEEKLY
     Route: 058
     Dates: start: 201501, end: 2016
  2. GOLIMUMAB [Concomitant]
     Active Substance: GOLIMUMAB
     Dosage: UNK

REACTIONS (13)
  - Oedema peripheral [Unknown]
  - Constipation [Unknown]
  - Drug hypersensitivity [Unknown]
  - Butterfly rash [Recovered/Resolved]
  - Synovitis [Recovered/Resolved]
  - Skin plaque [Unknown]
  - Abdominal pain [Unknown]
  - Bursitis [Unknown]
  - Rash papular [Recovered/Resolved]
  - Rotator cuff syndrome [Unknown]
  - C-reactive protein increased [Unknown]
  - Red blood cell sedimentation rate increased [Unknown]
  - Abdominal distension [Unknown]

NARRATIVE: CASE EVENT DATE: 2015
